FAERS Safety Report 4863349-4 (Version None)
Quarter: 2005Q4

REPORT INFORMATION
  Report Type: 
  Country: None (occurrence: None)
  Receive Date: 20051219
  Receipt Date: 20051205
  Transmission Date: 20060501
  Serious: Yes (Other)
  Sender: FDA-Public Use
  Company Number: US016467

PATIENT
  Sex: Male

DRUGS (1)
  1. ARSENIC TRIOXIDE [Suspect]
     Indication: MYELODYSPLASTIC SYNDROME
     Dates: start: 20051101

REACTIONS (2)
  - CONDITION AGGRAVATED [None]
  - PANCYTOPENIA [None]
